FAERS Safety Report 13102896 (Version 3)
Quarter: 2017Q2

REPORT INFORMATION
  Report Type: Report from Study
  Country: US (occurrence: US)
  Receive Date: 20170110
  Receipt Date: 20170403
  Transmission Date: 20170830
  Serious: Yes (Death, Hospitalization, Other)
  Sender: FDA-Public Use
  Company Number: US-ACTELION-A-US2017-147923

PATIENT
  Age: 56 Year
  Sex: Female

DRUGS (33)
  1. DELTASONE [Concomitant]
     Active Substance: PREDNISONE
     Dosage: 2.5 MG, QD
     Route: 048
  2. PROAIR HFA [Concomitant]
     Active Substance: ALBUTEROL SULFATE
     Dosage: 2 PUFFS INHALED BY MOUTH EVERY 4 HOURS AS NEEDED FOR WHEEZING
     Route: 048
  3. PHOSLO [Concomitant]
     Active Substance: CALCIUM ACETATE
     Dosage: 667 MG, TID, WITH MEALS
     Route: 048
  4. NEPHROCAPS [Concomitant]
     Active Substance: ASCORBIC ACID\BIOTIN\CYANOCOBALAMIN\FOLIC ACID\NIACIN\PANTOTHENIC ACID\PYRIDOXINE\RIBOFLAVIN\THIAMINE
     Dosage: 1 DF, QD
     Route: 048
  5. PRILOSEC [Concomitant]
     Active Substance: OMEPRAZOLE MAGNESIUM
     Dosage: 40 MG, QD, EVERY MORNING BEFORE BREAKFAST
     Route: 048
  6. DARUNAVIR [Concomitant]
     Active Substance: DARUNAVIR
     Dosage: 600 MG, BID
     Dates: start: 201602
  7. LEVOFLOXACIN. [Concomitant]
     Active Substance: LEVOFLOXACIN
     Dosage: 500 MG, QOD
  8. OPSUMIT [Suspect]
     Active Substance: MACITENTAN
     Indication: PULMONARY HYPERTENSION
     Dosage: 10 MG, QD
     Route: 048
     Dates: start: 201406, end: 20170114
  9. LYRICA [Concomitant]
     Active Substance: PREGABALIN
     Dosage: 75 MG, BID
     Route: 048
     Dates: start: 201602
  10. MIDODRINE [Concomitant]
     Active Substance: MIDODRINE
     Dosage: 10 MG, TID
  11. DAPSONE. [Concomitant]
     Active Substance: DAPSONE
     Dosage: 100 MG, QD
     Route: 048
     Dates: start: 201602
  12. NORVIR [Concomitant]
     Active Substance: RITONAVIR
     Dosage: 100 MG, BID, WITH MEALS
     Route: 048
  13. ASTELIN [Concomitant]
     Active Substance: AZELASTINE HYDROCHLORIDE
     Indication: SEASONAL ALLERGY
     Dosage: 137 MCG, 2 SPRAYS IN NOSE, BID
     Route: 045
  14. PREDNISONE. [Concomitant]
     Active Substance: PREDNISONE
     Dosage: 2.5 MG, QD
     Dates: start: 201602
  15. VENTAVIS [Suspect]
     Active Substance: ILOPROST
     Indication: PULMONARY HYPERTENSION
     Dosage: 5 MCG, 5-6 TIMES/DAY
     Route: 055
     Dates: start: 20131030
  16. LANOXIN [Concomitant]
     Active Substance: DIGOXIN
     Dosage: 125 MCG, QD
     Route: 048
  17. VITAMIN D2 [Concomitant]
     Active Substance: ERGOCALCIFEROL
     Indication: HYPOPHOSPHATAEMIA
     Dosage: 50000 U, Q1WEEK EVERY MONDAY
     Route: 048
  18. PROAIR HFA [Concomitant]
     Active Substance: ALBUTEROL SULFATE
  19. RITONAVIR. [Concomitant]
     Active Substance: RITONAVIR
     Dosage: 100 MG, BID
     Dates: start: 201602
  20. CEPHULAC [Concomitant]
     Active Substance: LACTULOSE
     Dosage: 10 GRAMS/15 ML, TAKE 30 ML, BID
     Route: 048
  21. COLACE [Concomitant]
     Active Substance: DOCUSATE SODIUM
     Dosage: 100 MG, QD
     Route: 048
  22. DIGOXIN. [Concomitant]
     Active Substance: DIGOXIN
  23. CYCLOBENZAPRINE. [Concomitant]
     Active Substance: CYCLOBENZAPRINE
  24. TENOFOVIR [Concomitant]
     Active Substance: TENOFOVIR
     Dosage: 300 MG, Q1WEEK
     Dates: start: 201602
  25. MERREM [Concomitant]
     Active Substance: MEROPENEM
     Dosage: 500 MG, QD
  26. VIREAD [Concomitant]
     Active Substance: TENOFOVIR DISOPROXIL FUMARATE
     Dosage: 300 MG, 1 TABLET EVERY MONDAY
     Route: 048
  27. ISENTRESS [Concomitant]
     Active Substance: RALTEGRAVIR POTASSIUM
     Dosage: 400 MG, BID
     Route: 048
  28. RALTEGRAVIR. [Concomitant]
     Active Substance: RALTEGRAVIR
     Dosage: 400 MG, BID
     Dates: start: 201602
  29. SINGULAIR [Concomitant]
     Active Substance: MONTELUKAST SODIUM
     Dosage: 10 MG, QD, AT BEDTIME
     Route: 048
  30. PREZISTA [Concomitant]
     Active Substance: DARUNAVIR ETHANOLATE
     Dosage: 600 MG, BID
     Route: 048
  31. PROAMATINE [Concomitant]
     Active Substance: MIDODRINE HYDROCHLORIDE
     Dosage: 10 MG, TID, WITH MEALS
     Route: 048
  32. ALLOPURINOL. [Concomitant]
     Active Substance: ALLOPURINOL
  33. LACTULOSE. [Concomitant]
     Active Substance: LACTULOSE
     Dosage: 20 MG, TID
     Dates: start: 201506

REACTIONS (29)
  - Pulseless electrical activity [Fatal]
  - Pneumonia [Unknown]
  - Influenza [Unknown]
  - Varices oesophageal [Unknown]
  - Myoclonus [Unknown]
  - Fatigue [Unknown]
  - Constipation [Unknown]
  - Stitch abscess [Unknown]
  - HIV infection [Unknown]
  - Cholelithiasis [Unknown]
  - Chest pain [Unknown]
  - Hepatic cirrhosis [Unknown]
  - Hyperammonaemia [Unknown]
  - Acute sinusitis [Unknown]
  - Systemic inflammatory response syndrome [Unknown]
  - Hypercapnia [Unknown]
  - Anxiety [Unknown]
  - Pancytopenia [Unknown]
  - Metabolic encephalopathy [Unknown]
  - End stage renal disease [Unknown]
  - Bronchitis [Unknown]
  - Chronic respiratory failure [Unknown]
  - Acute respiratory failure [Unknown]
  - Toxicity to various agents [Unknown]
  - Dyspnoea [Unknown]
  - Abdominal pain [Unknown]
  - Tricuspid valve incompetence [Unknown]
  - Renal atrophy [Unknown]
  - Portal hypertensive gastropathy [Unknown]

NARRATIVE: CASE EVENT DATE: 20140617
